FAERS Safety Report 7785369-2 (Version None)
Quarter: 2011Q3

REPORT INFORMATION
  Report Type: 
  Country: None (occurrence: None)
  Receive Date: 20110929
  Receipt Date: 20110919
  Transmission Date: 20111222
  Serious: Yes (Life-Threatening, Hospitalization)
  Sender: FDA-Public Use
  Company Number: FR-JNJFOC-20110907268

PATIENT
  Sex: Male

DRUGS (6)
  1. IMOVANE [Suspect]
     Indication: DEPRESSION
     Route: 048
     Dates: start: 20110825, end: 20110829
  2. ATARAX [Suspect]
     Indication: DEPRESSION
     Route: 048
     Dates: end: 20110901
  3. LEXOMIL [Suspect]
     Indication: DEPRESSION
     Route: 048
     Dates: end: 20110830
  4. PAROXETINE HCL [Suspect]
     Indication: DEPRESSION
     Route: 048
     Dates: start: 20110812, end: 20110829
  5. RISPERDAL [Suspect]
     Indication: PSYCHOTIC DISORDER
     Route: 048
     Dates: start: 20110825, end: 20110828
  6. PAROXETINE HCL [Suspect]
     Route: 048
     Dates: start: 20110829, end: 20110901

REACTIONS (5)
  - EXTRAPYRAMIDAL DISORDER [None]
  - DYSARTHRIA [None]
  - NEUROLEPTIC MALIGNANT SYNDROME [None]
  - FALL [None]
  - PULMONARY EMBOLISM [None]
